FAERS Safety Report 4601531-1 (Version None)
Quarter: 2005Q1

REPORT INFORMATION
  Report Type: 
  Country: None (occurrence: None)
  Receive Date: 20050308
  Receipt Date: 20050204
  Transmission Date: 20050727
  Serious: Yes (Death)
  Sender: FDA-Public Use
  Company Number: DE-MERCK-0502DEU00058

PATIENT
  Age: 68 Year
  Sex: Female

DRUGS (3)
  1. VIOXX [Suspect]
     Indication: PUBIC RAMI FRACTURE
     Route: 048
     Dates: start: 20040311, end: 20040317
  2. VIOXX [Suspect]
     Indication: FRACTURED ISCHIUM
     Route: 048
     Dates: start: 20040311, end: 20040317
  3. DIPYRONE [Concomitant]
     Route: 048
     Dates: start: 20040311

REACTIONS (2)
  - COMA HEPATIC [None]
  - JAUNDICE CHOLESTATIC [None]
